FAERS Safety Report 6334564-8 (Version None)
Quarter: 2009Q3

REPORT INFORMATION
  Report Type: 
  Country: None (occurrence: None)
  Receive Date: 20090831
  Receipt Date: 20090824
  Transmission Date: 20100115
  Serious: Yes (Other)
  Sender: FDA-Public Use
  Company Number: PHHY2009BR36286

PATIENT
  Sex: Male

DRUGS (3)
  1. DIOVAN [Suspect]
     Dosage: UNK
  2. DIOVAN [Suspect]
     Dosage: 320 MG
  3. VIROLIQUE [Suspect]

REACTIONS (2)
  - INFARCTION [None]
  - SWELLING [None]
